FAERS Safety Report 6985936-X (Version None)
Quarter: 2010Q3

REPORT INFORMATION
  Report Type: 
  Country: None (occurrence: None)
  Receive Date: 20100915
  Receipt Date: 20100902
  Transmission Date: 20110219
  Serious: Yes (Hospitalization)
  Sender: FDA-Public Use
  Company Number: US-ELI_LILLY_AND_COMPANY-US201009001783

PATIENT
  Age: 50 Year
  Sex: Female

DRUGS (4)
  1. BYETTA [Suspect]
     Dosage: 5 UG, UNK
     Route: 058
     Dates: start: 20070703, end: 20070730
  2. DIOVAN [Concomitant]
     Indication: BLOOD PRESSURE
     Dosage: 1 D/F, UNK
  3. FUROSEMIDE [Concomitant]
  4. ASPIRIN [Concomitant]
     Dosage: 88 MG, UNK

REACTIONS (1)
  - PANCREATITIS [None]
